FAERS Safety Report 9118020 (Version 1)
Quarter: 2013Q1

REPORT INFORMATION
  Report Type: Report from Study
  Country: None (occurrence: US)
  Receive Date: 20130128
  Receipt Date: 20130128
  Transmission Date: 20140127
  Serious: Yes (Other)
  Sender: FDA-Public Use
  Company Number: US-ROCHE-697809

PATIENT
  Sex: Male
  Weight: 70.3 kg

DRUGS (6)
  1. CAPECITABINE [Suspect]
     Indication: PANCREATIC CARCINOMA
     Dosage: 3 TABLETS
     Route: 048
     Dates: start: 20091212, end: 20100406
  2. CAPECITABINE [Suspect]
     Route: 048
     Dates: start: 201001, end: 201007
  3. ENBREL [Concomitant]
  4. METHOTREXATE [Concomitant]
  5. UNKNOWN MEDICATION [Concomitant]
  6. PREDONINE [Concomitant]

REACTIONS (8)
  - Palmar-plantar erythrodysaesthesia syndrome [Recovered/Resolved]
  - Stomatitis [Unknown]
  - Rhinorrhoea [Not Recovered/Not Resolved]
  - Eye irritation [Not Recovered/Not Resolved]
  - Pain in extremity [Unknown]
  - Blister [Unknown]
  - Malignant neoplasm progression [Unknown]
  - Disease progression [Unknown]
